FAERS Safety Report 9516528 (Version 1)
Quarter: 2013Q1

REPORT INFORMATION
  Report Type: Spontaneous
  Country: US (occurrence: None)
  Receive Date: 20130305
  Receipt Date: 20130305
  Transmission Date: 20140127
  Serious: Yes (Hospitalization)
  Sender: FDA-Public Use
  Company Number: 163-21880-12011919

PATIENT
  Age: 73 Year
  Sex: Male
  Weight: 107.3 kg

DRUGS (22)
  1. REVLIMID (LENALIDOMIDE) (15 MILLIGRAM, CAPSULES) [Suspect]
     Indication: MANTLE CELL LYMPHOMA
     Dosage: 15 MG, X 3 WEEKS EVERY MONTH, PO
     Route: 048
     Dates: start: 20111121, end: 201201
  2. REVLIMID (LENALIDOMIDE) (15 MILLIGRAM, CAPSULES) [Suspect]
     Indication: NON-HODGKIN^S LYMPHOMA
     Dosage: 15 MG, X 3 WEEKS EVERY MONTH, PO
     Route: 048
     Dates: start: 20111121, end: 201201
  3. TRICOR (FENOFIBRATE) [Concomitant]
  4. FESO4 (FERROUS SULFATE) [Concomitant]
  5. FLOVENT (FLUTICASONE PROPIONATE) (INHALANT) [Concomitant]
  6. HYPERSOL 7% (BUDESONIDE) (7 PERCENT, INHALANT) [Concomitant]
  7. INSULIN LANTUS (INSULIN GLARGINE) [Concomitant]
  8. INSULIN NOVOLOG (INSULIN ASPART) [Concomitant]
  9. LEVOTHYROXINE (LEVOTHYROXINE) [Concomitant]
  10. MAGNESIUM (MAGNESIUM) [Concomitant]
  11. LOPRESSOR (METOPROLOL TARTRATE) (25 MILLIGRAM, UNKNOWN) [Concomitant]
  12. VITAMINS [Concomitant]
  13. ZOCOR (SIMVASTATIN) [Concomitant]
  14. VESICARE (SOLIFENACIN SUCCINATE) [Concomitant]
  15. VALTREX (VALACICLOVIR HYDROCHLORIDE) [Concomitant]
  16. XOPENEX (LEVOSALBUTAMOL) (INHALANT) [Concomitant]
  17. RITUXIMAB (RITUXIMAB) [Concomitant]
  18. IVIG (IMMUNOGLOBULIN) [Concomitant]
  19. AZITHROMYCIN (AZITHROMYCIN) [Concomitant]
  20. ERYTHROMYCIN (ERYTHROMYCIN) [Concomitant]
  21. NYSTATIN (NYSTATIN) [Concomitant]
  22. OMEPRAZOLE (OMEPRAZOLE) [Concomitant]

REACTIONS (4)
  - Pneumonia [None]
  - Pyrexia [None]
  - Chills [None]
  - White blood cell count decreased [None]
